FAERS Safety Report 4596886-0 (Version None)
Quarter: 2005Q1

REPORT INFORMATION
  Report Type: 
  Country: None (occurrence: None)
  Receive Date: 20050228
  Receipt Date: 20050214
  Transmission Date: 20050727
  Serious: Yes (Hospitalization)
  Sender: FDA-Public Use
  Company Number: 230561K05USA

PATIENT
  Age: 52 Year
  Sex: Female

DRUGS (1)
  1. REBIF [Suspect]
     Indication: MULTIPLE SCLEROSIS
     Dosage: 44 MCG 3 IN 1 WEEKS, SUBCUTANEOUS
     Route: 058
     Dates: start: 20020429

REACTIONS (8)
  - ALOPECIA [None]
  - CONDITION AGGRAVATED [None]
  - ENDOMETRIAL DISORDER [None]
  - POST PROCEDURAL COMPLICATION [None]
  - PRECANCEROUS CELLS PRESENT [None]
  - UTERINE LEIOMYOMA [None]
  - UTERINE POLYP [None]
  - VISION BLURRED [None]
